FAERS Safety Report 15077199 (Version 10)
Quarter: 2020Q3

REPORT INFORMATION
  Report Type: Report from Study
  Country: US (occurrence: US)
  Receive Date: 20180627
  Receipt Date: 20200724
  Transmission Date: 20201102
  Serious: Yes (Death, Hospitalization)
  Sender: FDA-Public Use
  Company Number: US-ACTELION-A-NJ2018-173157

PATIENT
  Age: 75 Year
  Sex: Female
  Weight: 53.97 kg

DRUGS (4)
  1. TORSEMIDE. [Concomitant]
     Active Substance: TORSEMIDE
  2. REMODULIN [Concomitant]
     Active Substance: TREPROSTINIL
     Dosage: UNK
     Dates: end: 20200705
  3. LASIX [Concomitant]
     Active Substance: FUROSEMIDE
  4. OPSUMIT [Suspect]
     Active Substance: MACITENTAN
     Indication: PULMONARY ARTERIAL HYPERTENSION
     Dosage: 10 MG, QD
     Route: 048
     Dates: start: 20180404

REACTIONS (19)
  - Death [Fatal]
  - Condition aggravated [Unknown]
  - Syncope [Recovered/Resolved]
  - Fluid retention [Recovering/Resolving]
  - Diarrhoea [Unknown]
  - Right ventricular dysfunction [Unknown]
  - Hypopnoea [Unknown]
  - Asthenia [Unknown]
  - Pneumonia [Unknown]
  - Fluid overload [Unknown]
  - Fall [Recovered/Resolved]
  - Oxygen saturation decreased [Unknown]
  - Chills [Unknown]
  - Device alarm issue [Not Recovered/Not Resolved]
  - Hospice care [Unknown]
  - Dizziness [Unknown]
  - Nasal congestion [Unknown]
  - Contusion [Unknown]
  - Eye contusion [Unknown]

NARRATIVE: CASE EVENT DATE: 20180508
